FAERS Safety Report 6836607-1 (Version None)
Quarter: 2010Q3

REPORT INFORMATION
  Report Type: 
  Country: None (occurrence: None)
  Receive Date: 20100713
  Receipt Date: 20100705
  Transmission Date: 20110219
  Serious: Yes (Other)
  Sender: FDA-Public Use
  Company Number: PHHO2010NL04846

PATIENT
  Age: 66 Year
  Sex: Male

DRUGS (4)
  1. AFINITOR [Suspect]
     Indication: RENAL CELL CARCINOMA
     Dosage: 10 MG, UNK
     Dates: start: 20100213
  2. AFINITOR [Suspect]
     Dosage: 10 MG/ EVERY OTHER DAY
     Dates: start: 20100225
  3. AFINITOR [Suspect]
     Dosage: 10 MG X 4/WEEK
     Dates: start: 20100311
  4. AFINITOR [Suspect]
     Dosage: 10 MG X 5/WEEK
     Dates: start: 20100325, end: 20100531

REACTIONS (12)
  - ANAEMIA [None]
  - BLADDER DISORDER [None]
  - CONSTIPATION [None]
  - DISEASE PROGRESSION [None]
  - ERYTHEMA [None]
  - HAEMOGLOBIN DECREASED [None]
  - OEDEMA [None]
  - PARAESTHESIA [None]
  - PRURITUS [None]
  - RASH [None]
  - SKIN DISORDER [None]
  - SKIN SWELLING [None]
